FAERS Safety Report 5594069-9 (Version None)
Quarter: 2008Q1

REPORT INFORMATION
  Report Type: 
  Country: None (occurrence: None)
  Receive Date: 20080116
  Receipt Date: 20080107
  Transmission Date: 20080703
  Serious: Yes (Hospitalization)
  Sender: FDA-Public Use
  Company Number: FR-PFIZER INC-2007058825

PATIENT
  Sex: Male

DRUGS (9)
  1. TAHOR [Suspect]
     Route: 048
  2. AMIODARONE HCL [Suspect]
     Route: 048
     Dates: start: 19980101, end: 20070525
  3. NITROGLYCERIN [Concomitant]
  4. SINTROM [Concomitant]
  5. ASPEGIC 1000 [Concomitant]
  6. AMLOR [Concomitant]
  7. LASIX [Concomitant]
  8. CORVASAL [Concomitant]
  9. IKOREL [Concomitant]

REACTIONS (1)
  - PERIPHERAL SENSORY NEUROPATHY [None]
